FAERS Safety Report 10453733 (Version 1)
Quarter: 2014Q3

REPORT INFORMATION
  Report Type: Spontaneous
  Country: US (occurrence: US)
  Receive Date: 20140915
  Receipt Date: 20140915
  Transmission Date: 20150326
  Serious: Yes (Other)
  Sender: FDA-Public Use
  Company Number: US-BRISTOL-MYERS SQUIBB COMPANY-21254305

PATIENT
  Age: 85 Year
  Sex: Male

DRUGS (3)
  1. ELIQUIS [Suspect]
     Active Substance: APIXABAN
     Dosage: DOSE OF APIXABAN WAS INCREASED TO 5MG BID
     Dates: start: 20140618
  2. PLAVIX [Suspect]
     Active Substance: CLOPIDOGREL BISULFATE
  3. ASPIRIN. [Suspect]
     Active Substance: ASPIRIN

REACTIONS (1)
  - Deep vein thrombosis [Unknown]

NARRATIVE: CASE EVENT DATE: 20140624
